FAERS Safety Report 25989348 (Version 1)
Quarter: 2025Q4

REPORT INFORMATION
  Report Type: Spontaneous
  Country: US (occurrence: US)
  Receive Date: 20251103
  Receipt Date: 20251103
  Transmission Date: 20260118
  Serious: No
  Sender: IPSEN BIOPHARMACEUTICALS, INC.
  Company Number: US-IPSEN Group, Research and Development-2025-18464

PATIENT
  Age: 61 Year
  Sex: Female

DRUGS (3)
  1. IQIRVO [Suspect]
     Active Substance: ELAFIBRANOR
     Indication: Primary biliary cholangitis
     Route: 048
     Dates: start: 20250527
  2. IQIRVO [Suspect]
     Active Substance: ELAFIBRANOR
     Route: 048
     Dates: start: 202507
  3. OCALIVA [Concomitant]
     Active Substance: OBETICHOLIC ACID

REACTIONS (3)
  - Muscle spasms [Recovered/Resolved]
  - Peripheral swelling [Recovering/Resolving]
  - Muscle spasms [Not Recovered/Not Resolved]

NARRATIVE: CASE EVENT DATE: 20250615
